FAERS Safety Report 9996346 (Version 2)
Quarter: 2014Q2

REPORT INFORMATION
  Report Type: Spontaneous
  Country: US (occurrence: US)
  Receive Date: 20140311
  Receipt Date: 20140616
  Transmission Date: 20141212
  Serious: Yes (Death)
  Sender: FDA-Public Use
  Company Number: US-PFIZER INC-2014068445

PATIENT
  Age: 71 Year
  Sex: Male

DRUGS (5)
  1. SUTENT [Suspect]
     Indication: RENAL CANCER
     Dosage: 25 MG, ALTERNATE DAY, EVERY OTHER DAY (QOD)
     Route: 048
     Dates: start: 200912
  2. AMLODIPINE BESYLATE [Concomitant]
     Dosage: UNK
  3. AFRIN NASAL SPRAY [Concomitant]
     Dosage: UNK
  4. PRILOSEC [Concomitant]
     Dosage: UNK
  5. DECADRON [Concomitant]
     Indication: METASTASES TO CENTRAL NERVOUS SYSTEM
     Dosage: 4 MG, UNK
     Route: 048
     Dates: start: 20140108, end: 20140129

REACTIONS (1)
  - Cardiac arrest [Fatal]
